FAERS Safety Report 23129839 (Version 1)
Quarter: 2023Q4

REPORT INFORMATION
  Report Type: Spontaneous
  Country: US (occurrence: US)
  Receive Date: 20231031
  Receipt Date: 20231031
  Transmission Date: 20240109
  Serious: Yes (Hospitalization)
  Sender: FDA-Public Use
  Company Number: US-MYLANLABS-2021M1003469

PATIENT
  Sex: Male

DRUGS (9)
  1. TOPIRAMATE [Suspect]
     Active Substance: TOPIRAMATE
     Indication: Parkinsonism
     Dosage: UNK
     Route: 065
  2. TOPIRAMATE [Suspect]
     Active Substance: TOPIRAMATE
     Indication: Tremor
  3. CARBIDOPA\LEVODOPA [Suspect]
     Active Substance: CARBIDOPA\LEVODOPA
     Indication: Parkinsonism
     Dosage: 1 DOSAGE FORM
     Route: 048
  4. CARBIDOPA\LEVODOPA [Suspect]
     Active Substance: CARBIDOPA\LEVODOPA
     Indication: Tremor
  5. PRIMIDONE [Suspect]
     Active Substance: PRIMIDONE
     Indication: Parkinsonism
     Dosage: UNK
     Route: 065
  6. PRIMIDONE [Suspect]
     Active Substance: PRIMIDONE
     Indication: Tremor
  7. CARBIDOPA [Suspect]
     Active Substance: CARBIDOPA
     Indication: Parkinsonism
     Dosage: 25 MILLIGRAM, QID
     Route: 048
  8. CARBIDOPA [Suspect]
     Active Substance: CARBIDOPA
     Indication: Tremor
  9. CHENODIOL [Concomitant]
     Active Substance: CHENODIOL
     Indication: Drug therapy
     Dosage: 250 MILLIGRAM, STARTED AT THE TIME OF DIAGNOSIS (AGE 22 YEARS)
     Route: 065

REACTIONS (2)
  - Treatment failure [Unknown]
  - Gastrointestinal disorder [Unknown]
